FAERS Safety Report 7987473-2 (Version None)
Quarter: 2011Q4

REPORT INFORMATION
  Report Type: 
  Country: None (occurrence: None)
  Receive Date: 20111216
  Receipt Date: 20111212
  Transmission Date: 20120403
  Serious: Yes (Other)
  Sender: FDA-Public Use
  Company Number: PHHY2010CA42326

PATIENT
  Sex: Female

DRUGS (5)
  1. VITAMIN D [Concomitant]
     Dosage: UNK UKN, UNK
     Dates: start: 20020101
  2. ZOLEDRONOC ACID [Suspect]
     Indication: OSTEOPOROSIS
     Dosage: 5 MG, UNK
     Route: 042
     Dates: start: 20081229
  3. FORTEO [Concomitant]
     Dosage: 20 MG, UNK
     Dates: start: 20110401
  4. ZOLEDRONOC ACID [Suspect]
     Dosage: 5MG/100ML
     Route: 042
     Dates: start: 20091221
  5. CALCIUM [Concomitant]
     Dosage: UNK UKN, UNK
     Dates: start: 20020101

REACTIONS (4)
  - FOREARM FRACTURE [None]
  - WRIST FRACTURE [None]
  - FALL [None]
  - DECREASED ACTIVITY [None]
